FAERS Safety Report 15841149 (Version 1)
Quarter: 2019Q1

REPORT INFORMATION
  Report Type: Report from Study
  Country: US (occurrence: US)
  Receive Date: 20190118
  Receipt Date: 20190118
  Transmission Date: 20190417
  Serious: Yes (Hospitalization)
  Sender: FDA-Public Use
  Company Number: US-ROCHE-2245637

PATIENT
  Sex: Female

DRUGS (3)
  1. ERIBULIN [Suspect]
     Active Substance: ERIBULIN
     Indication: INFLAMMATORY CARCINOMA OF THE BREAST
     Dosage: OVER ABOUT 5 MINUTES ON DAYS 1 AND 8 OF CYCLES 1-4
     Route: 042
  2. COBIMETINIB. [Suspect]
     Active Substance: COBIMETINIB
     Indication: INFLAMMATORY CARCINOMA OF THE BREAST
     Dosage: WITH OR WITHOUT FOOD ON A 3 WEEKS ON, 1 WEEK OFF SCHEDULE.
     Route: 048
  3. ATEZOLIZUMAB. [Suspect]
     Active Substance: ATEZOLIZUMAB
     Indication: INFLAMMATORY CARCINOMA OF THE BREAST
     Dosage: OVER ABOUT 30 MINUTES
     Route: 042

REACTIONS (2)
  - Dyspnoea [Unknown]
  - Oedema peripheral [Unknown]

NARRATIVE: CASE EVENT DATE: 20190107
